FAERS Safety Report 17452867 (Version 1)
Quarter: 2020Q1

REPORT INFORMATION
  Report Type: Spontaneous
  Country: US (occurrence: US)
  Receive Date: 20200224
  Receipt Date: 20200224
  Transmission Date: 20200409
  Serious: Yes (Life-Threatening, Other)
  Sender: FDA-Public Use
  Company Number: US-AMGEN-USASP2020029573

PATIENT

DRUGS (1)
  1. CARFILZOMIB [Suspect]
     Active Substance: CARFILZOMIB
     Indication: PLASMA CELL MYELOMA
     Dosage: UNK UNK, QD5 CONSECUTIVE DAYS ON A 14 DAY CYCLE
     Route: 042

REACTIONS (4)
  - Haematotoxicity [Unknown]
  - Therapy partial responder [Unknown]
  - Febrile neutropenia [Unknown]
  - Thrombocytopenia [Unknown]
